FAERS Safety Report 6739598-7 (Version None)
Quarter: 2010Q2

REPORT INFORMATION
  Report Type: 
  Country: None (occurrence: None)
  Receive Date: 20100525
  Receipt Date: 20100512
  Transmission Date: 20101027
  Serious: Yes (Hospitalization)
  Sender: FDA-Public Use
  Company Number: IE-ROCHE-677382

PATIENT
  Sex: Female
  Weight: 58.5 kg

DRUGS (6)
  1. BEVACIZUMAB [Suspect]
     Indication: BREAST CANCER
     Dosage: VIAL
     Route: 042
     Dates: start: 20091215
  2. DOCETAXEL [Suspect]
     Indication: BREAST CANCER
     Dosage: VIAL.
     Route: 042
     Dates: start: 20091215
  3. CYCLOPHOSPHAMIDE [Suspect]
     Indication: BREAST CANCER
     Dosage: VIAL.
     Route: 042
     Dates: start: 20091215
  4. DEXAMETHASONE [Concomitant]
     Dosage: STARTING DAY BEFORE TREATMENT FOR 3 DAYS
  5. MOTILIUM [Concomitant]
     Dosage: POST CHEMO X 1/52
  6. LANSOPRAZOLE [Concomitant]

REACTIONS (2)
  - FEBRILE NEUTROPENIA [None]
  - ODYNOPHAGIA [None]
